FAERS Safety Report 14061522 (Version 2)
Quarter: 2017Q4

REPORT INFORMATION
  Report Type: Spontaneous
  Country: US (occurrence: US)
  Receive Date: 20171009
  Receipt Date: 20171012
  Transmission Date: 20180321
  Serious: Yes (Other)
  Sender: FDA-Public Use
  Company Number: US-STRIDES ARCOLAB LIMITED-2017SP013124

PATIENT

DRUGS (6)
  1. DEXTROSE. [Concomitant]
     Active Substance: DEXTROSE
     Dosage: 200 ML, EVERY 8 HOURS
     Route: 042
     Dates: start: 20160125, end: 20160127
  2. MICAFUNGIN [Concomitant]
     Active Substance: MICAFUNGIN
     Indication: PRODUCT USED FOR UNKNOWN INDICATION
     Dosage: UNK
     Route: 042
  3. VANCOMYCIN [Suspect]
     Active Substance: VANCOMYCIN
     Dosage: 15 MG/KG, EVERY 8 HOURS
     Route: 042
     Dates: start: 20160125, end: 20160127
  4. MEROPENEM. [Concomitant]
     Active Substance: MEROPENEM
     Indication: PRODUCT USED FOR UNKNOWN INDICATION
     Dosage: UNK
     Route: 042
  5. VANCOMYCIN [Suspect]
     Active Substance: VANCOMYCIN
     Indication: PRODUCT USED FOR UNKNOWN INDICATION
     Dosage: 15 MG/KG, EVERY 12 HRS
     Route: 042
     Dates: start: 20160123, end: 20160124
  6. DEXTROSE. [Concomitant]
     Active Substance: DEXTROSE
     Indication: PRODUCT USED FOR UNKNOWN INDICATION
     Dosage: 200 ML, EVERY 12 HRS
     Route: 042
     Dates: start: 20160123, end: 20160124

REACTIONS (8)
  - Skin erosion [Recovered/Resolved]
  - Skin exfoliation [Recovered/Resolved]
  - Erythema [Recovered/Resolved]
  - Nikolsky^s sign [Recovered/Resolved]
  - Linear IgA disease [Recovered/Resolved]
  - Papule [Recovered/Resolved]
  - Rash erythematous [Recovered/Resolved]
  - Blister [Recovered/Resolved]
